FAERS Safety Report 5778628-6 (Version None)
Quarter: 2008Q2

REPORT INFORMATION
  Report Type: 
  Country: None (occurrence: None)
  Receive Date: 20080618
  Receipt Date: 20080618
  Transmission Date: 20081010
  Serious: Yes (Other)
  Sender: FDA-Public Use
  Company Number: None

PATIENT
  Sex: Female
  Weight: 58 kg

DRUGS (1)
  1. CARBOPLATIN [Suspect]
     Dates: start: 20080609, end: 20080609

REACTIONS (6)
  - EAR DISORDER [None]
  - EYE PRURITUS [None]
  - INFUSION RELATED REACTION [None]
  - LACRIMATION INCREASED [None]
  - PRURITUS [None]
  - SENSATION OF HEAVINESS [None]
